FAERS Safety Report 4659688-2 (Version None)
Quarter: 2005Q2

REPORT INFORMATION
  Report Type: 
  Country: None (occurrence: None)
  Receive Date: 20050420
  Receipt Date: 20050309
  Transmission Date: 20051028
  Serious: No
  Sender: FDA-Public Use
  Company Number: PHEH2005US02978

PATIENT
  Age: 69 Year
  Sex: Female

DRUGS (2)
  1. ENABLEX [Suspect]
     Indication: HYPERTONIC BLADDER
     Dates: start: 20050201
  2. ATENOLOL TABLETS USP (NGX)(ATENOLOL) [Concomitant]

REACTIONS (1)
  - WEIGHT INCREASED [None]
